FAERS Safety Report 8579052-3 (Version None)
Quarter: 2012Q3

REPORT INFORMATION
  Report Type: 
  Country: None (occurrence: None)
  Receive Date: 20120808
  Receipt Date: 20120730
  Transmission Date: 20120928
  Serious: Yes (Other)
  Sender: FDA-Public Use
  Company Number: US-ASTRAZENECA-2012SE53752

PATIENT
  Age: 78 Year
  Sex: Female
  Weight: 63.5 kg

DRUGS (2)
  1. BRILINTA [Suspect]
     Indication: MYOCARDIAL INFARCTION
     Route: 048
     Dates: start: 20111210, end: 20120626
  2. ASPIRIN [Concomitant]

REACTIONS (2)
  - RECTAL HAEMORRHAGE [None]
  - EPISTAXIS [None]
